FAERS Safety Report 11358052 (Version 1)
Quarter: 2015Q3

REPORT INFORMATION
  Report Type: Spontaneous
  Country: US (occurrence: US)
  Receive Date: 20150803
  Receipt Date: 20150803
  Transmission Date: 20151125
  Serious: No
  Sender: FDA-Public Use
  Company Number: US-ELI_LILLY_AND_COMPANY-US200902007527

PATIENT
  Sex: Male

DRUGS (1)
  1. STRATTERA [Suspect]
     Active Substance: ATOMOXETINE HYDROCHLORIDE
     Indication: ATTENTION DEFICIT/HYPERACTIVITY DISORDER
     Dosage: 25 MG, UNKNOWN
     Route: 065
     Dates: start: 20090220, end: 20090220

REACTIONS (6)
  - Bedridden [Unknown]
  - Feeling abnormal [Unknown]
  - Constipation [Unknown]
  - Urinary retention [Unknown]
  - Drug ineffective [Unknown]
  - Somnolence [Unknown]

NARRATIVE: CASE EVENT DATE: 20090221
